FAERS Safety Report 22135406 (Version 1)
Quarter: 2023Q1

REPORT INFORMATION
  Report Type: Spontaneous
  Country: US (occurrence: None)
  Receive Date: 20230323
  Receipt Date: 20230323
  Transmission Date: 20230417
  Serious: No
  Sender: FDA-Public Use
  Company Number: None

PATIENT

DRUGS (4)
  1. CLONIDINE [Suspect]
     Active Substance: CLONIDINE
     Route: 062
  2. CLONIDINE [Suspect]
     Active Substance: CLONIDINE
     Route: 023
  3. NITROGLYCERIN [Suspect]
     Active Substance: NITROGLYCERIN
     Route: 023
  4. NITROGLYCERIN [Suspect]
     Active Substance: NITROGLYCERIN
     Route: 023

REACTIONS (1)
  - Product packaging confusion [None]
